FAERS Safety Report 5877122-1 (Version None)
Quarter: 2008Q3

REPORT INFORMATION
  Report Type: 
  Country: None (occurrence: None)
  Receive Date: 20080910
  Receipt Date: 20080830
  Transmission Date: 20090109
  Serious: Yes (Other)
  Sender: FDA-Public Use
  Company Number: US-PFIZER INC-2008036385

PATIENT
  Sex: Male
  Weight: 58.5 kg

DRUGS (4)
  1. SUTENT [Suspect]
     Indication: GASTROINTESTINAL STROMAL TUMOUR
     Route: 048
     Dates: start: 20080321, end: 20080324
  2. SYNTHROID [Concomitant]
     Dosage: TEXT:0.125
  3. TAMSULOSIN HCL [Concomitant]
     Dosage: TEXT:0.4
  4. SORAFENIB TOSILATE [Concomitant]
     Dosage: TEXT:200

REACTIONS (9)
  - BRONCHITIS [None]
  - CHILLS [None]
  - DIZZINESS [None]
  - EAR DISCOMFORT [None]
  - HEADACHE [None]
  - HYPERHIDROSIS [None]
  - NAUSEA [None]
  - STOMACH DISCOMFORT [None]
  - VOMITING [None]
